FAERS Safety Report 7051202-X (Version None)
Quarter: 2010Q4

REPORT INFORMATION
  Report Type: 
  Country: None (occurrence: None)
  Receive Date: 20101019
  Receipt Date: 20101012
  Transmission Date: 20110411
  Serious: Yes (Life-Threatening, Hospitalization)
  Sender: FDA-Public Use
  Company Number: HR-WYE-H18194010

PATIENT
  Sex: Male

DRUGS (6)
  1. CONTROLOC [Suspect]
     Route: 048
  2. HALDOL [Suspect]
     Route: 048
  3. TENOX [Concomitant]
     Dosage: 5 MG
  4. TRITACE [Concomitant]
     Dosage: 5 MG
  5. ATORVASTATIN [Suspect]
     Dosage: UNKNOWN
  6. LORSILAN [Concomitant]

REACTIONS (4)
  - ALANINE AMINOTRANSFERASE INCREASED [None]
  - ASPARTATE AMINOTRANSFERASE INCREASED [None]
  - RENAL FAILURE ACUTE [None]
  - RHABDOMYOLYSIS [None]
